FAERS Safety Report 5506691-6 (Version None)
Quarter: 2007Q4

REPORT INFORMATION
  Report Type: 
  Country: None (occurrence: None)
  Receive Date: 20071105
  Receipt Date: 20071102
  Transmission Date: 20080405
  Serious: Yes (Disabling, Other)
  Sender: FDA-Public Use
  Company Number: JP-BRISTOL-MYERS SQUIBB COMPANY-13741442

PATIENT
  Age: 55 Year
  Sex: Male

DRUGS (4)
  1. PARAPLATIN [Suspect]
     Indication: PLEURAL MESOTHELIOMA
     Route: 041
     Dates: start: 20061023, end: 20061023
  2. GEMZAR [Concomitant]
     Indication: PLEURAL MESOTHELIOMA
     Route: 041
     Dates: start: 20060823, end: 20061106
  3. DEXART [Concomitant]
     Route: 041
     Dates: start: 20061023, end: 20061106
  4. NASEA [Concomitant]
     Route: 041
     Dates: start: 20061023, end: 20061106

REACTIONS (2)
  - PLATELET COUNT DECREASED [None]
  - RETINAL HAEMORRHAGE [None]
